FAERS Safety Report 6554305-9 (Version None)
Quarter: 2010Q1

REPORT INFORMATION
  Report Type: 
  Country: None (occurrence: None)
  Receive Date: 20100127
  Receipt Date: 20100118
  Transmission Date: 20100710
  Serious: Yes (Other)
  Sender: FDA-Public Use
  Company Number: US-JNJFOC-20100107385

PATIENT
  Age: 41 Year
  Sex: Female
  Weight: 134.72 kg

DRUGS (7)
  1. LEVAQUIN [Suspect]
     Indication: SINUSITIS
     Route: 048
  2. ZITHROMAX [Concomitant]
     Indication: SINUSITIS
     Route: 048
  3. LYRICA [Concomitant]
     Indication: FIBROMYALGIA
     Route: 048
  4. ZOCOR [Concomitant]
     Indication: BLOOD CHOLESTEROL INCREASED
     Route: 048
  5. ASPIRIN [Concomitant]
     Indication: CARDIOVASCULAR EVENT PROPHYLAXIS
     Route: 048
  6. CALCIUM [Concomitant]
     Indication: NUTRITIONAL SUPPORT
     Route: 048
  7. VITAMIN D [Concomitant]
     Indication: NUTRITIONAL SUPPORT
     Route: 048

REACTIONS (4)
  - DRUG DOSE OMISSION [None]
  - EYELID PTOSIS [None]
  - PUPILS UNEQUAL [None]
  - SINUS HEADACHE [None]
